FAERS Safety Report 25775569 (Version 1)
Quarter: 2025Q3

REPORT INFORMATION
  Report Type: Spontaneous
  Country: US (occurrence: US)
  Receive Date: 20250909
  Receipt Date: 20250909
  Transmission Date: 20251021
  Serious: No
  Sender: BOEHRINGER INGELHEIM
  Company Number: US-BoehringerIngelheim-2025-BI-093794

PATIENT
  Age: 59 Year
  Sex: Female

DRUGS (4)
  1. ADALIMUMAB-ADBM [Suspect]
     Active Substance: ADALIMUMAB-ADBM
     Indication: Rheumatoid arthritis
  2. ALLEGRA-D [Concomitant]
     Active Substance: FEXOFENADINE HYDROCHLORIDE\PSEUDOEPHEDRINE HYDROCHLORIDE
     Indication: Hypersensitivity
  3. CLARITIN [Concomitant]
     Active Substance: LORATADINE
     Indication: Hypersensitivity
  4. METHOTREXATE [Concomitant]
     Active Substance: METHOTREXATE
     Indication: Rheumatoid arthritis

REACTIONS (1)
  - Sinus congestion [Recovering/Resolving]

NARRATIVE: CASE EVENT DATE: 20250801
